FAERS Safety Report 24439012 (Version 1)
Quarter: 2024Q4

REPORT INFORMATION
  Report Type: Spontaneous
  Country: US (occurrence: US)
  Receive Date: 20241015
  Receipt Date: 20241015
  Transmission Date: 20250115
  Serious: No
  Sender: DR REDDYS
  Company Number: US-DRL-USA-LIT/USA/24/0015052

PATIENT
  Age: 65 Year
  Sex: Male

DRUGS (14)
  1. TERBINAFINE [Suspect]
     Active Substance: TERBINAFINE\TERBINAFINE HYDROCHLORIDE
     Indication: Dermatophytosis
     Dosage: WEEKS OF ORAL TERBINAFINE 250 MG/D
     Route: 048
  2. TERBINAFINE [Suspect]
     Active Substance: TERBINAFINE\TERBINAFINE HYDROCHLORIDE
     Indication: Trichophytosis
     Dosage: WEEKS OF ORAL TERBINAFINE 250 MG/D
     Route: 048
  3. FLUCONAZOLE [Suspect]
     Active Substance: FLUCONAZOLE
     Indication: Dermatophytosis
     Dosage: ORAL FLUCONAZOLE 200 MG/D
     Route: 048
  4. FLUCONAZOLE [Suspect]
     Active Substance: FLUCONAZOLE
     Indication: Trichophytosis
  5. CLOTRIMAZOLE [Concomitant]
     Active Substance: CLOTRIMAZOLE
     Indication: Dermatophytosis
     Route: 061
  6. CLOTRIMAZOLE [Concomitant]
     Active Substance: CLOTRIMAZOLE
     Indication: Trichophytosis
  7. FLUOCINONIDE [Concomitant]
     Active Substance: FLUOCINONIDE
     Indication: Dermatophytosis
     Route: 061
  8. FLUOCINONIDE [Concomitant]
     Active Substance: FLUOCINONIDE
     Indication: Trichophytosis
  9. CLOBETASOL [Concomitant]
     Active Substance: CLOBETASOL
     Indication: Dermatophytosis
     Route: 061
  10. CLOBETASOL [Concomitant]
     Active Substance: CLOBETASOL
     Indication: Trichophytosis
  11. GRISEOFULVIN [Concomitant]
     Active Substance: GRISEOFULVIN
     Indication: Dermatophytosis
     Dosage: 2 WEEKS OF ORAL GRISEOFULVIN
     Route: 048
  12. GRISEOFULVIN [Concomitant]
     Active Substance: GRISEOFULVIN
     Indication: Trichophytosis
  13. PREDNISONE [Concomitant]
     Active Substance: PREDNISONE
     Indication: Dermatophytosis
     Dosage: ORAL PREDNISONE TAPER STARTING AT 60 MG/D
     Route: 048
  14. PREDNISONE [Concomitant]
     Active Substance: PREDNISONE
     Indication: Trichophytosis

REACTIONS (1)
  - Drug ineffective for unapproved indication [Unknown]
